FAERS Safety Report 5806753-X (Version None)
Quarter: 2008Q3

REPORT INFORMATION
  Report Type: 
  Country: None (occurrence: None)
  Receive Date: 20080709
  Receipt Date: 20080709
  Transmission Date: 20090109
  Serious: Yes (Death, Other)
  Sender: FDA-Public Use
  Company Number: None

PATIENT
  Age: 22 Year
  Sex: Male
  Weight: 97.5234 kg

DRUGS (1)
  1. WELLBUTRIN [Suspect]
     Indication: DEPRESSION
     Dosage: 150MG 1 PER DAY PO
     Route: 048
     Dates: start: 20070305, end: 20070509

REACTIONS (3)
  - AGGRESSION [None]
  - COMPLETED SUICIDE [None]
  - IMPULSIVE BEHAVIOUR [None]
